FAERS Safety Report 10435129 (Version 1)
Quarter: 2014Q3

REPORT INFORMATION
  Report Type: Spontaneous
  Country: US (occurrence: None)
  Receive Date: 20140708
  Receipt Date: 20140708
  Transmission Date: 20150326
  Serious: Yes (Hospitalization, Other)
  Sender: FDA-Public Use
  Company Number: AUR-APL-2014-06129

PATIENT
  Age: 38 Year
  Sex: Male

DRUGS (3)
  1. TOPIRAMATE (TOPIRAMATE) [Suspect]
     Active Substance: TOPIRAMATE
     Indication: PRODUCT USED FOR UNKNOWN INDICATION
  2. CARBAMAZEPINE (CARBAMAZEPINE) [Concomitant]
     Active Substance: CARBAMAZEPINE
  3. RISPERIDONE (RISPERIDONE) [Concomitant]
     Active Substance: RISPERIDONE

REACTIONS (13)
  - Ischaemic gastritis [None]
  - Hyperthermia [None]
  - Heart rate increased [None]
  - Liver injury [None]
  - Upper gastrointestinal haemorrhage [None]
  - Heat stroke [None]
  - Multi-organ failure [None]
  - Renal failure acute [None]
  - Gastric perforation [None]
  - Unresponsive to stimuli [None]
  - Disseminated intravascular coagulation [None]
  - Hypotension [None]
  - Oxygen saturation decreased [None]
